FAERS Safety Report 5018019-9 (Version None)
Quarter: 2006Q2

REPORT INFORMATION
  Report Type: 
  Country: None (occurrence: None)
  Receive Date: 20060530
  Receipt Date: 20050504
  Transmission Date: 20061013
  Serious: Yes (Other)
  Sender: FDA-Public Use
  Company Number: 2005070839

PATIENT
  Age: 80 Year
  Sex: Female
  Weight: 70 kg

DRUGS (8)
  1. LYRICA [Suspect]
     Indication: NEURALGIA
     Dosage: 150 MG (75 MG, 2 IN 1 D), ORAL
     Route: 048
     Dates: start: 20050421
  2. OMEPRAZOLE [Concomitant]
  3. CITALOPRAM HYDROBROMIDE [Concomitant]
  4. MORPHINE SULFATE [Concomitant]
  5. RAMIPRIL [Concomitant]
  6. SERETIDE MITE (FLUTICASONE PROPIONATE, SALMETEROL XINAFOATE) [Concomitant]
  7. LACTULOSE [Concomitant]
  8. FUROSEMIDE [Concomitant]

REACTIONS (1)
  - HALLUCINATION, VISUAL [None]
